FAERS Safety Report 16157446 (Version 6)
Quarter: 2020Q3

REPORT INFORMATION
  Report Type: Spontaneous
  Country: US (occurrence: US)
  Receive Date: 20190404
  Receipt Date: 20200731
  Transmission Date: 20201102
  Serious: Yes (Hospitalization, Other)
  Sender: FDA-Public Use
  Company Number: US-PFIZER INC-2019137603

PATIENT
  Age: 75 Year
  Sex: Female
  Weight: 80 kg

DRUGS (4)
  1. LYRICA [Suspect]
     Active Substance: PREGABALIN
     Dosage: 25 MG, 1X/DAY
     Dates: start: 2017
  2. LYRICA [Suspect]
     Active Substance: PREGABALIN
     Indication: NEURALGIA
     Dosage: 50 MG, UNK
  3. LYRICA [Suspect]
     Active Substance: PREGABALIN
     Dosage: 300 MG, UNK [2 LYRICA OF 150MG]
  4. LYRICA [Suspect]
     Active Substance: PREGABALIN
     Indication: OSTEOPOROSIS
     Dosage: 25 MG, 1X/DAY (50 MG SPLITTING IT IN HALF)
     Route: 048
     Dates: start: 20150817

REACTIONS (11)
  - Bladder discomfort [Unknown]
  - Dizziness [Unknown]
  - Inflammation [Unknown]
  - Limb discomfort [Unknown]
  - Pneumonia [Recovered/Resolved]
  - Product prescribing error [Unknown]
  - Malaise [Unknown]
  - Intentional product misuse [Unknown]
  - Expired product administered [Unknown]
  - Gait inability [Recovered/Resolved]
  - Head discomfort [Unknown]

NARRATIVE: CASE EVENT DATE: 2017
